FAERS Safety Report 8798280 (Version 1)
Quarter: 2012Q4

REPORT INFORMATION
  Report Type: 
  Country: US (occurrence: US)
  Receive Date: 20120920
  Receipt Date: 20120920
  Transmission Date: 20130627
  Serious: Yes (Hospitalization)
  Sender: FDA-Public Use
  Company Number: US-ASTRAZENECA-2012SE71252

PATIENT
  Age: 67 Year
  Sex: Female
  Weight: 73.9 kg

DRUGS (11)
  1. ESOMEPRAZOLE SODIUM [Suspect]
     Indication: DYSPEPSIA
     Route: 042
  2. HUMIRA [Suspect]
     Indication: CROHN^S DISEASE
     Dosage: 40 MG/0.8 ML PEN ONE IN TWO WEEK
     Route: 065
     Dates: start: 2010
  3. NITROGLYCERIN [Suspect]
     Indication: ANGINA PECTORIS
     Route: 060
  4. PREDNISONE [Concomitant]
     Indication: ASTHMA
  5. PREDNISONE [Concomitant]
     Indication: CROHN^S DISEASE
  6. PURINETHOL [Concomitant]
     Indication: CROHN^S DISEASE
  7. DULERA [Concomitant]
     Indication: ASTHMA
  8. WELLBUTRIN [Concomitant]
     Indication: DEPRESSION
  9. CELEXA [Concomitant]
     Indication: DEPRESSION
  10. CEFPODOXIME [Concomitant]
     Indication: CYSTITIS
     Dates: start: 2007
  11. IMMODIUM [Concomitant]
     Indication: CROHN^S DISEASE

REACTIONS (13)
  - Fall [Unknown]
  - Head injury [Unknown]
  - Blood potassium decreased [Unknown]
  - Craniocerebral injury [Unknown]
  - Contusion [Unknown]
  - Amnesia [Unknown]
  - Laceration [Unknown]
  - Headache [Unknown]
  - Dizziness [Unknown]
  - Arthralgia [Unknown]
  - Chest discomfort [Unknown]
  - Dyspepsia [Unknown]
  - Drug ineffective [Unknown]
